FAERS Safety Report 10265046 (Version 1)
Quarter: 2014Q2

REPORT INFORMATION
  Report Type: Spontaneous
  Country: US (occurrence: US)
  Receive Date: 20140627
  Receipt Date: 20140627
  Transmission Date: 20141212
  Serious: No
  Sender: FDA-Public Use
  Company Number: US-PFIZER INC-2014175618

PATIENT
  Age: 48 Year
  Sex: Female
  Weight: 72.56 kg

DRUGS (2)
  1. PREMARIN [Suspect]
     Indication: QUALITY OF LIFE DECREASED
     Dosage: UNK
     Route: 048
     Dates: start: 1987, end: 1987
  2. PREMARIN [Suspect]
     Indication: FEELING ABNORMAL

REACTIONS (4)
  - Malaise [Unknown]
  - Feeling abnormal [Unknown]
  - Abdominal distension [Unknown]
  - Off label use [Unknown]
